FAERS Safety Report 12826581 (Version 1)
Quarter: 2016Q4

REPORT INFORMATION
  Report Type: Spontaneous
  Country: US (occurrence: US)
  Receive Date: 20161006
  Receipt Date: 20161006
  Transmission Date: 20170207
  Serious: No
  Sender: FDA-Public Use
  Company Number: US-JAZZ-2016-US-012512

PATIENT
  Age: 44 Year
  Sex: Female
  Weight: 70.3 kg

DRUGS (27)
  1. PRAVASTATIN SODIUM. [Concomitant]
     Active Substance: PRAVASTATIN SODIUM
  2. VITAMIN C [Concomitant]
     Active Substance: ASCORBIC ACID
  3. CETIRIZINE HCL [Concomitant]
     Active Substance: CETIRIZINE HYDROCHLORIDE
  4. WELLBUTRIN XL [Concomitant]
     Active Substance: BUPROPION HYDROCHLORIDE
  5. XYREM [Suspect]
     Active Substance: SODIUM OXYBATE
     Indication: NARCOLEPSY
     Dosage: 2.25 G, BID
     Route: 048
     Dates: start: 20160701, end: 20160708
  6. BIOTIN [Concomitant]
     Active Substance: BIOTIN
  7. FISH OIL CONCENTRATE [Concomitant]
  8. MELATONIN [Concomitant]
     Active Substance: MELATONIN
  9. TURMERIC [Concomitant]
     Active Substance: TURMERIC
  10. GLIPIZIDE ER [Concomitant]
     Active Substance: GLIPIZIDE
  11. NASONEX [Concomitant]
     Active Substance: MOMETASONE FUROATE
  12. COPPER [Concomitant]
     Active Substance: COPPER
  13. DEPLIN [Concomitant]
     Active Substance: LEVOMEFOLATE CALCIUM
  14. CINNAMON. [Concomitant]
     Active Substance: CINNAMON
  15. IRON [Concomitant]
     Active Substance: IRON
  16. VALERIAN [Concomitant]
     Active Substance: VALERIAN
  17. XYREM [Suspect]
     Active Substance: SODIUM OXYBATE
     Dosage: 3.75 G, BID
     Route: 048
     Dates: start: 2016
  18. PROBIOTIC [Concomitant]
     Active Substance: PROBIOTICS NOS
  19. ALPHA LIPOIC ACID [Concomitant]
     Active Substance: .ALPHA.-LIPOIC ACID
  20. VITAMIN B-1 [Concomitant]
     Active Substance: THIAMINE
  21. VITAMIN D3 [Concomitant]
     Active Substance: CHOLECALCIFEROL
  22. FENOFIBRATE. [Concomitant]
     Active Substance: FENOFIBRATE
  23. COENZYME Q10 [Concomitant]
     Active Substance: UBIDECARENONE
  24. DOCUSATE SODIUM. [Concomitant]
     Active Substance: DOCUSATE SODIUM
  25. HAIR, SKIN + NAILS [Concomitant]
     Active Substance: MINERALS\VITAMINS
  26. OMEPRAZOLE DR [Concomitant]
     Active Substance: OMEPRAZOLE
  27. ZINC [Concomitant]
     Active Substance: ZINC\ZINC CHLORIDE

REACTIONS (3)
  - Gastroenteritis viral [Unknown]
  - Somnolence [Unknown]
  - Nausea [Unknown]

NARRATIVE: CASE EVENT DATE: 201607
